FAERS Safety Report 21708898 (Version 1)
Quarter: 2022Q4

REPORT INFORMATION
  Report Type: Report from Study
  Country: US (occurrence: US)
  Receive Date: 20221210
  Receipt Date: 20221210
  Transmission Date: 20230113
  Serious: Yes (Other)
  Sender: FDA-Public Use
  Company Number: US-ABBVIE-4227952

PATIENT
  Age: 61 Year
  Sex: Female

DRUGS (2)
  1. HUMIRA [Suspect]
     Active Substance: ADALIMUMAB
     Indication: Rheumatoid arthritis
     Route: 058
  2. HUMIRA [Suspect]
     Active Substance: ADALIMUMAB
     Route: 058

REACTIONS (8)
  - Rotator cuff syndrome [Not Recovered/Not Resolved]
  - COVID-19 [Unknown]
  - Wrist fracture [Unknown]
  - Tinnitus [Unknown]
  - Tendonitis [Unknown]
  - Upper limb fracture [Not Recovered/Not Resolved]
  - Fall [Unknown]
  - Nasopharyngitis [Unknown]

NARRATIVE: CASE EVENT DATE: 20220501
